FAERS Safety Report 10935061 (Version 1)
Quarter: 2015Q1

REPORT INFORMATION
  Report Type: Spontaneous
  Country: US (occurrence: US)
  Receive Date: 20150320
  Receipt Date: 20150320
  Transmission Date: 20150721
  Serious: No
  Sender: FDA-Public Use
  Company Number: US-TEVA-547419USA

PATIENT
  Sex: Male
  Weight: 99.88 kg

DRUGS (2)
  1. OXYCODONE [Concomitant]
     Active Substance: OXYCODONE
     Indication: PAIN
  2. MODAFINIL. [Suspect]
     Active Substance: MODAFINIL
     Indication: SOMNOLENCE

REACTIONS (6)
  - Somnolence [Unknown]
  - Chest pain [Unknown]
  - Feeling hot [Unknown]
  - Chills [Unknown]
  - Pain [Unknown]
  - Feeling abnormal [Unknown]
